FAERS Safety Report 19517041 (Version 1)
Quarter: 2021Q3

REPORT INFORMATION
  Report Type: Report from Study
  Country: None (occurrence: AR)
  Receive Date: 20210711
  Receipt Date: 20210711
  Transmission Date: 20211014
  Serious: Yes (Hospitalization, Other)
  Sender: FDA-Public Use
  Company Number: AR-ABBVIE-21K-007-3984166-00

PATIENT
  Age: 36 Year
  Sex: Male

DRUGS (1)
  1. HUMIRA [Suspect]
     Active Substance: ADALIMUMAB
     Indication: PSORIASIS
     Route: 058
     Dates: start: 20160630

REACTIONS (7)
  - Skin burning sensation [Unknown]
  - Gastric ulcer [Unknown]
  - Abdominal pain [Unknown]
  - Haematochezia [Unknown]
  - Haemoptysis [Unknown]
  - Weight decreased [Unknown]
  - Bacterial infection [Unknown]

NARRATIVE: CASE EVENT DATE: 202106
